FAERS Safety Report 5288087-8 (Version None)
Quarter: 2007Q2

REPORT INFORMATION
  Report Type: 
  Country: None (occurrence: None)
  Receive Date: 20070405
  Receipt Date: 20070404
  Transmission Date: 20071010
  Serious: Yes (Hospitalization)
  Sender: FDA-Public Use
  Company Number: AU-BRISTOL-MYERS SQUIBB COMPANY-13730627

PATIENT
  Sex: Male

DRUGS (4)
  1. CISPLATIN [Suspect]
     Indication: GASTRIC CANCER
     Route: 041
     Dates: start: 20070124, end: 20070124
  2. S-1 [Suspect]
     Indication: GASTRIC CANCER
     Route: 048
     Dates: start: 20070124, end: 20070125
  3. NOVOMIX [Concomitant]
     Indication: DIABETES MELLITUS
     Route: 058
  4. ESOMEPRAZOLE MAGNESIUM [Concomitant]
     Indication: GASTROOESOPHAGEAL REFLUX DISEASE
     Route: 048

REACTIONS (1)
  - SMALL INTESTINAL OBSTRUCTION [None]
